FAERS Safety Report 17674039 (Version 1)
Quarter: 2020Q2

REPORT INFORMATION
  Report Type: Spontaneous
  Country: IE (occurrence: GB)
  Receive Date: 20200415
  Receipt Date: 20200415
  Transmission Date: 20200714
  Serious: Yes (Other)
  Sender: FDA-Public Use
  Company Number: IE-AUROBINDO-AUR-APL-2020-013628

PATIENT
  Sex: Female

DRUGS (12)
  1. MELPHALAN INJECTION [Suspect]
     Active Substance: MELPHALAN
     Indication: CONGENITAL RETINOBLASTOMA
     Dosage: 3 MILLIGRAM, CYCLICAL (2 DOSES)
     Route: 013
  2. TOPOTECAN [Suspect]
     Active Substance: TOPOTECAN HYDROCHLORIDE
     Indication: CHEMOTHERAPY
     Dosage: 1 MILLIGRAM, CYCLICAL
     Route: 013
  3. MELPHALAN INJECTION [Suspect]
     Active Substance: MELPHALAN
     Indication: CHEMOTHERAPY
     Dosage: 4 MILLIGRAM, CYCLICAL
     Route: 013
  4. CARBOPLATIN. [Suspect]
     Active Substance: CARBOPLATIN
     Dosage: SIX CYCLES
     Route: 065
  5. CARBOPLATIN. [Suspect]
     Active Substance: CARBOPLATIN
     Indication: CONGENITAL RETINOBLASTOMA
     Dosage: 30 MILLIGRAM
     Route: 013
  6. ETOPOSIDE. [Suspect]
     Active Substance: ETOPOSIDE
     Indication: RETINOBLASTOMA
     Dosage: SIX CYCLES
     Route: 065
  7. MELPHALAN INJECTION [Suspect]
     Active Substance: MELPHALAN
     Dosage: 5 MILLIGRAM, CYCLICAL
     Route: 013
  8. MELPHALAN INJECTION [Suspect]
     Active Substance: MELPHALAN
     Dosage: 7.5 MILLIGRAM, CYCLICAL
     Route: 013
  9. TOPOTECAN [Suspect]
     Active Substance: TOPOTECAN HYDROCHLORIDE
     Indication: CONGENITAL RETINOBLASTOMA
     Dosage: 0.3 MILLIGRAM, CYCLICAL (2 DOSES)
     Route: 013
  10. TOPOTECAN [Suspect]
     Active Substance: TOPOTECAN HYDROCHLORIDE
     Dosage: 0.3 MILLIGRAM, CYCLICAL
     Route: 013
  11. TOPOTECAN [Suspect]
     Active Substance: TOPOTECAN HYDROCHLORIDE
     Dosage: 1.5 MILLIGRAM, CYCLICAL
     Route: 013
  12. VINCRISTINE [Suspect]
     Active Substance: VINCRISTINE
     Indication: RETINOBLASTOMA
     Dosage: SIX CYCLES
     Route: 065

REACTIONS (8)
  - Swelling [Unknown]
  - Disease recurrence [Unknown]
  - Ischaemia [Unknown]
  - Swelling of eyelid [Unknown]
  - Eyelid rash [Unknown]
  - Eyelid ptosis [Recovering/Resolving]
  - Conjunctival disorder [Unknown]
  - Scleral disorder [Unknown]
